FAERS Safety Report 6150985-0 (Version None)
Quarter: 2009Q2

REPORT INFORMATION
  Report Type: 
  Country: None (occurrence: None)
  Receive Date: 20090410
  Receipt Date: 20090102
  Transmission Date: 20091009
  Serious: No
  Sender: FDA-Public Use
  Company Number: A0762191A

PATIENT
  Age: 62 Year
  Sex: Female

DRUGS (1)
  1. TYKERB [Suspect]
     Indication: DRUG USE FOR UNKNOWN INDICATION
     Dosage: 1250MG PER DAY
     Dates: start: 20081223

REACTIONS (5)
  - ABNORMAL FAECES [None]
  - DIARRHOEA [None]
  - DYSPEPSIA [None]
  - EPISTAXIS [None]
  - FREQUENT BOWEL MOVEMENTS [None]
